FAERS Safety Report 10156466 (Version 2)
Quarter: 2014Q2

REPORT INFORMATION
  Report Type: Report from Study
  Country: AU (occurrence: None)
  Receive Date: 20140505
  Receipt Date: 20140513
  Transmission Date: 20141212
  Serious: Yes (Other)
  Sender: FDA-Public Use
  Company Number: 2014SA037729

PATIENT
  Age: 59 Year
  Sex: Female

DRUGS (18)
  1. LANTUS [Suspect]
     Indication: TYPE 2 DIABETES MELLITUS
     Route: 058
  2. METFORMIN (METFORMIN HYDROCHLORIDE) [Suspect]
     Indication: TYPE 2 DIABETES MELLITUS
  3. KARVEA [Concomitant]
  4. MAGNESIUM [Concomitant]
  5. ANTIHYPERTENSIVES [Concomitant]
  6. CHLOESTEROL AND TRIGLYCERIDES REDUCER [Concomitant]
  7. METFORMIN [Concomitant]
  8. IRBESARTAN [Concomitant]
  9. LERCADIP [Concomitant]
  10. PRAVASTATIN [Concomitant]
  11. ASPIRIN [Concomitant]
  12. ENDEP [Concomitant]
  13. DIAZEPAM [Concomitant]
  14. EPIVAL [Concomitant]
  15. VITAMIN B [Concomitant]
  16. ALL OTHER THERAPEUTIC PRODUCTS [Concomitant]
  17. PANADOL OSTEO [Concomitant]
  18. BYETTA [Concomitant]

REACTIONS (11)
  - Hypoglycaemia [None]
  - Hyperglycaemia [None]
  - Haematemesis [None]
  - Gingival bleeding [None]
  - Diarrhoea [None]
  - Dizziness [None]
  - Sleep apnoea syndrome [None]
  - Weight decreased [None]
  - Anxiety [None]
  - Needle issue [None]
  - Syringe issue [None]
